FAERS Safety Report 7300036 (Version 3)
Quarter: 2013Q1

REPORT INFORMATION
  Report Type: Spontaneous
  Country: FR (occurrence: FR)
  Receive Date: 20100301
  Receipt Date: 20130220
  Transmission Date: 20140127
  Serious: Yes (Hospitalization)
  Sender: FDA-Public Use
  Company Number: FR-ASTRAZENECA-2010SE07521

PATIENT
  Age: 77 Year
  Sex: Female

DRUGS (9)
  1. INEXIUM [Suspect]
     Route: 048
     Dates: start: 20100104, end: 20100106
  2. DAFALGAN [Suspect]
     Dates: start: 20100104, end: 20100106
  3. SPASFON [Suspect]
     Dates: start: 20100104, end: 20100106
  4. DIPRIVAN [Concomitant]
  5. FENTANYL [Concomitant]
  6. KETAMINE [Concomitant]
  7. CEFAZOLINE [Concomitant]
  8. ACUPAN [Concomitant]
  9. LEVOTHYROX [Concomitant]

REACTIONS (4)
  - Drug reaction with eosinophilia and systemic symptoms [Recovered/Resolved]
  - Dermatitis exfoliative [Recovered/Resolved]
  - Hepatocellular injury [Recovered/Resolved]
  - Cholestasis [Recovered/Resolved]
